FAERS Safety Report 9802122 (Version 1)
Quarter: 2014Q1

REPORT INFORMATION
  Report Type: Spontaneous
  Country: US (occurrence: US)
  Receive Date: 20140107
  Receipt Date: 20140107
  Transmission Date: 20141002
  Serious: No
  Sender: FDA-Public Use
  Company Number: US-ASTRAZENECA-2013SE88770

PATIENT
  Age: 84 Year
  Sex: Female

DRUGS (7)
  1. TOPROL XL [Suspect]
     Route: 048
  2. OMEPRAZOLE [Suspect]
     Route: 048
  3. CRESTOR [Suspect]
     Route: 048
  4. BRILINTA [Suspect]
     Route: 048
     Dates: end: 20131114
  5. LOSARTAN [Concomitant]
  6. FENTANYL [Concomitant]
  7. ASPIRIN [Concomitant]

REACTIONS (1)
  - Dyspnoea [Unknown]
